FAERS Safety Report 4804692-4 (Version None)
Quarter: 2005Q4

REPORT INFORMATION
  Report Type: 
  Country: None (occurrence: None)
  Receive Date: 20051014
  Receipt Date: 20051007
  Transmission Date: 20060501
  Serious: Yes (Other)
  Sender: FDA-Public Use
  Company Number: 163-20785-04100116

PATIENT
  Sex: 0

DRUGS (6)
  1. THALOMID [Suspect]
     Indication: MULTIPLE MYELOMA
     Dosage: INDUCTION PHASE: 200-400 MG STARTING ON DAY 4, DAILY, ORAL; MAINTENANCE PHASE: 200-400 MG, DAILY, OR
     Route: 048
     Dates: start: 20021220, end: 20030310
  2. THALOMID [Suspect]
     Indication: MULTIPLE MYELOMA
     Dosage: INDUCTION PHASE: 200-400 MG STARTING ON DAY 4, DAILY, ORAL; MAINTENANCE PHASE: 200-400 MG, DAILY, OR
     Route: 048
     Dates: start: 20030311, end: 20031202
  3. GENASENSE [Suspect]
     Indication: MULTIPLE MYELOMA
     Dosage: INDUCTION PHASE: 5MG/KG/DAY, ON DAYS 1-7, 22-28, 43-49, INTRAVENOUS DRIP; MAINTENANCE PHASE: 3-5 MG/
     Route: 041
     Dates: start: 20021217, end: 20030310
  4. GENASENSE [Suspect]
     Indication: MULTIPLE MYELOMA
     Dosage: INDUCTION PHASE: 5MG/KG/DAY, ON DAYS 1-7, 22-28, 43-49, INTRAVENOUS DRIP; MAINTENANCE PHASE: 3-5 MG/
     Route: 041
     Dates: start: 20030311, end: 20031202
  5. DEXAMETHASONE [Suspect]
     Indication: MULTIPLE MYELOMA
     Dosage: INDUCTION PHASE: 40 MG ON DAYS 4-7, 25-28, AND 46-49, ORAL; MAINTENANCE PHASE: 20 MG ON DAYS 4-7, EV
     Route: 048
     Dates: start: 20021220, end: 20030310
  6. DEXAMETHASONE [Suspect]
     Indication: MULTIPLE MYELOMA
     Dosage: INDUCTION PHASE: 40 MG ON DAYS 4-7, 25-28, AND 46-49, ORAL; MAINTENANCE PHASE: 20 MG ON DAYS 4-7, EV
     Route: 048
     Dates: start: 20030314, end: 20031202

REACTIONS (34)
  - ALANINE AMINOTRANSFERASE ABNORMAL [None]
  - ARTHRALGIA [None]
  - ASTHENIA [None]
  - BACK PAIN [None]
  - BLOOD CREATININE ABNORMAL [None]
  - CHILLS [None]
  - CONDITION AGGRAVATED [None]
  - COORDINATION ABNORMAL [None]
  - COUGH [None]
  - DEAFNESS UNILATERAL [None]
  - DIPLOPIA [None]
  - DISEASE PROGRESSION [None]
  - DYSKINESIA [None]
  - DYSPNOEA [None]
  - EXTRAPYRAMIDAL DISORDER [None]
  - FATIGUE [None]
  - FLUSHING [None]
  - GOUT [None]
  - GRANULOCYTES ABNORMAL [None]
  - HYPERGLYCAEMIA [None]
  - HYPOCALCAEMIA [None]
  - HYPOKALAEMIA [None]
  - HYPOXIA [None]
  - LETHARGY [None]
  - MALAISE [None]
  - NASOPHARYNGITIS [None]
  - NEUTROPHIL COUNT ABNORMAL [None]
  - PERIPHERAL SENSORY NEUROPATHY [None]
  - PLATELET DISORDER [None]
  - PYREXIA [None]
  - RESTLESSNESS [None]
  - THERAPEUTIC RESPONSE DECREASED [None]
  - TREMOR [None]
  - WHITE BLOOD CELL COUNT DECREASED [None]
